FAERS Safety Report 9078455 (Version 1)
Quarter: 2013Q1

REPORT INFORMATION
  Report Type: Report from Study
  Country: US (occurrence: US)
  Receive Date: 20130130
  Receipt Date: 20130130
  Transmission Date: 20140127
  Serious: No
  Sender: FDA-Public Use
  Company Number: US-ABBOTT-12P-163-0960288-00

PATIENT
  Sex: Male
  Weight: 83.99 kg

DRUGS (11)
  1. HUMIRA 40 MG/ 0.8 ML PRE-FILLED SYRINGE [Suspect]
     Indication: RHEUMATOID ARTHRITIS
     Route: 058
     Dates: start: 200610, end: 201206
  2. HUMIRA 40 MG/ 0.8 ML PRE-FILLED SYRINGE [Suspect]
     Route: 058
     Dates: start: 201208
  3. PREVACID [Concomitant]
     Indication: GASTRIC DISORDER
  4. ZOCOR [Concomitant]
     Indication: CARDIAC DISORDER
  5. VOLTAREN [Concomitant]
     Indication: RHEUMATOID ARTHRITIS
  6. MIRATEX [Concomitant]
     Indication: PARKINSON^S DISEASE
  7. ELAVIL [Concomitant]
     Indication: PARKINSON^S DISEASE
  8. NEURONTIN [Concomitant]
     Indication: PARKINSON^S DISEASE
  9. CYMBALTA [Concomitant]
     Indication: PARKINSON^S DISEASE
  10. FLOMAX [Concomitant]
     Indication: PRODUCT USED FOR UNKNOWN INDICATION
  11. BABY ASPIRIN [Concomitant]
     Indication: CARDIAC DISORDER

REACTIONS (9)
  - Death of relative [Recovering/Resolving]
  - Nervousness [Recovered/Resolved]
  - Herpes zoster [Recovered/Resolved]
  - Injection site pruritus [Recovered/Resolved]
  - Injection site irritation [Recovered/Resolved]
  - Local swelling [Recovering/Resolving]
  - Pain in extremity [Recovering/Resolving]
  - Death of relative [Unknown]
  - Drug dose omission [Unknown]
